FAERS Safety Report 4356130-6 (Version None)
Quarter: 2004Q2

REPORT INFORMATION
  Report Type: 
  Country: None (occurrence: None)
  Receive Date: 20040511
  Receipt Date: 20040504
  Transmission Date: 20050107
  Serious: Yes (Other)
  Sender: FDA-Public Use
  Company Number: PHNU2004DE01722

PATIENT
  Age: 33 Year
  Sex: Male

DRUGS (1)
  1. LAMISIL [Suspect]
     Indication: ONYCHOMYCOSIS
     Dosage: 250 MG, QD
     Route: 048
     Dates: start: 20040101, end: 20040429

REACTIONS (2)
  - ANTINUCLEAR ANTIBODY POSITIVE [None]
  - BLOOD CREATINE PHOSPHOKINASE INCREASED [None]
